FAERS Safety Report 8354915-2 (Version None)
Quarter: 2012Q2

REPORT INFORMATION
  Report Type: 
  Country: None (occurrence: None)
  Receive Date: 20120511
  Receipt Date: 20120508
  Transmission Date: 20120825
  Serious: Yes (Other)
  Sender: FDA-Public Use
  Company Number: US-PFIZER INC-2012061853

PATIENT
  Age: 59 Year
  Sex: Female

DRUGS (7)
  1. PRISTIQ [Suspect]
     Dosage: 50 MG, UNK
  2. HYDROCHLOROTHIAZIDE [Concomitant]
     Dosage: 25 MG, UNK
  3. NEXIUM [Concomitant]
     Dosage: 40 MG, UNK
  4. PREDNISONE [Concomitant]
     Dosage: 5 MG, UNK
  5. TYLENOL (CAPLET) [Concomitant]
     Indication: ARTHRALGIA
     Dosage: 650 MG, UNK
  6. PRAVASTATIN SODIUM [Concomitant]
     Dosage: 40 MG, UNK
  7. CEPHALEXIN [Concomitant]
     Dosage: 500 MG, UNK

REACTIONS (5)
  - ESSENTIAL HYPERTENSION [None]
  - INSOMNIA [None]
  - INTERVERTEBRAL DISC DEGENERATION [None]
  - HYPERLIPIDAEMIA [None]
  - DEPRESSION [None]
